FAERS Safety Report 9013029 (Version 1)
Quarter: 2013Q1

REPORT INFORMATION
  Report Type: Spontaneous
  Country: US (occurrence: US)
  Receive Date: 20130114
  Receipt Date: 20130114
  Transmission Date: 20140127
  Serious: Yes (Death, Hospitalization, Disabling, Other)
  Sender: FDA-Public Use
  Company Number: US-009507513-0805USA00890

PATIENT
  Sex: 0

DRUGS (2)
  1. FOSAMAX [Suspect]
     Indication: OSTEOPOROSIS
     Dosage: 10 MG, UNK
     Route: 048
     Dates: start: 19990329, end: 200205
  2. FOSAMAX [Suspect]
     Dosage: 70 MG, QW
     Route: 048
     Dates: start: 20020819, end: 200612

REACTIONS (37)
  - Cardiac arrest [Fatal]
  - Coronary artery disease [Fatal]
  - Cardio-respiratory arrest [Unknown]
  - Rotator cuff syndrome [Unknown]
  - Arthropathy [Unknown]
  - Bone disorder [Unknown]
  - Adverse event [Unknown]
  - Osteonecrosis of jaw [Unknown]
  - Osteomyelitis [Unknown]
  - Depression [Unknown]
  - Bone loss [Not Recovered/Not Resolved]
  - Gingivitis [Unknown]
  - Fistula [Unknown]
  - Fistula [Unknown]
  - Dental caries [Unknown]
  - Dental caries [Unknown]
  - Periodontitis [Unknown]
  - Bone loss [Not Recovered/Not Resolved]
  - Loose tooth [Unknown]
  - Bone loss [Not Recovered/Not Resolved]
  - Fistula [Unknown]
  - Amnesia [Unknown]
  - Pubis fracture [Recovered/Resolved]
  - Cholelithiasis [Unknown]
  - Renal cyst [Unknown]
  - Cerebral atrophy [Unknown]
  - Cerebral ischaemia [Unknown]
  - Lacunar infarction [Unknown]
  - Intervertebral disc degeneration [Unknown]
  - Cervical spinal stenosis [Unknown]
  - Osteopenia [Unknown]
  - Spinal disorder [Unknown]
  - Cataract [Unknown]
  - Cataract [Unknown]
  - Gastrointestinal neoplasm [Unknown]
  - Dementia [Unknown]
  - Transient ischaemic attack [Unknown]
